FAERS Safety Report 25320985 (Version 2)
Quarter: 2025Q2

REPORT INFORMATION
  Report Type: Spontaneous
  Country: US (occurrence: US)
  Receive Date: 20250515
  Receipt Date: 20250617
  Transmission Date: 20250717
  Serious: No
  Sender: SANOFI AVENTIS
  Company Number: US-SA-2025SA137833

PATIENT
  Sex: Female

DRUGS (9)
  1. KEVZARA [Suspect]
     Active Substance: SARILUMAB
     Indication: Rheumatoid arthritis
     Dosage: 200 MG, QOW
     Route: 058
     Dates: start: 20210717
  2. SYMBICORT [Concomitant]
     Active Substance: BUDESONIDE\FORMOTEROL FUMARATE DIHYDRATE
  3. PREDNISONE [Concomitant]
     Active Substance: PREDNISONE
  4. FLUCONAZOLE [Concomitant]
     Active Substance: FLUCONAZOLE
  5. FLUCONAZOLE [Concomitant]
     Active Substance: FLUCONAZOLE
  6. PREDNISONE [Concomitant]
     Active Substance: PREDNISONE
  7. LEVALBUTEROL [Concomitant]
     Active Substance: LEVALBUTEROL
  8. BETAMETHASONE\BETAMETHASONE DIPROPIONATE\CLOTRIMAZOLE [Concomitant]
     Active Substance: BETAMETHASONE\BETAMETHASONE DIPROPIONATE\CLOTRIMAZOLE
  9. AZITHROMYCIN [Concomitant]
     Active Substance: AZITHROMYCIN

REACTIONS (3)
  - Loss of personal independence in daily activities [Unknown]
  - Pain [Unknown]
  - Drug ineffective [Unknown]
